FAERS Safety Report 20110698 (Version 1)
Quarter: 2021Q4

REPORT INFORMATION
  Report Type: Spontaneous
  Country: US (occurrence: US)
  Receive Date: 20211124
  Receipt Date: 20211124
  Transmission Date: 20220304
  Serious: Yes (Other)
  Sender: FDA-Public Use
  Company Number: US-PAIPHARMA-2021-US-025123

PATIENT
  Age: 69 Year
  Sex: Male

DRUGS (1)
  1. SULFAMETHOXAZOLE\TRIMETHOPRIM [Suspect]
     Active Substance: SULFAMETHOXAZOLE\TRIMETHOPRIM
     Indication: Pneumocystis jirovecii pneumonia
     Dosage: 15 MG/KG DAILY
     Route: 048

REACTIONS (2)
  - Crystalluria [Recovered/Resolved]
  - Acute kidney injury [Recovered/Resolved]
